FAERS Safety Report 7157162-5 (Version None)
Quarter: 2010Q4

REPORT INFORMATION
  Report Type: 
  Country: None (occurrence: None)
  Receive Date: 20101214
  Receipt Date: 20091214
  Transmission Date: 20110411
  Serious: No
  Sender: FDA-Public Use
  Company Number: US-ASTRAZENECA-2009SE32035

PATIENT
  Age: 65 Year
  Sex: Female
  Weight: 74.8 kg

DRUGS (4)
  1. CRESTOR [Suspect]
     Route: 048
     Dates: start: 20091202
  2. CRESTOR [Suspect]
     Route: 048
     Dates: start: 20091201
  3. TOPROL-XL [Concomitant]
  4. THYROID MEDICINE [Concomitant]

REACTIONS (6)
  - DIZZINESS [None]
  - FEELING HOT [None]
  - FLUSHING [None]
  - HEADACHE [None]
  - MYALGIA [None]
  - PYREXIA [None]
